FAERS Safety Report 14695400 (Version 1)
Quarter: 2018Q1

REPORT INFORMATION
  Report Type: Spontaneous
  Country: US (occurrence: US)
  Receive Date: 20180329
  Receipt Date: 20180329
  Transmission Date: 20180509
  Serious: Yes (Hospitalization)
  Sender: FDA-Public Use
  Company Number: US-TEVA-2018-US-874833

PATIENT
  Age: 72 Year
  Sex: Female

DRUGS (2)
  1. CLOPIDOGREL [Suspect]
     Active Substance: CLOPIDOGREL BISULFATE
     Route: 065
  2. ASPIRIN. [Suspect]
     Active Substance: ASPIRIN
     Route: 065

REACTIONS (4)
  - Extradural haematoma [Recovering/Resolving]
  - Paraplegia [Recovering/Resolving]
  - Anal sphincter atony [Recovering/Resolving]
  - Anaesthesia [Recovering/Resolving]
